FAERS Safety Report 22653368 (Version 1)
Quarter: 2023Q2

REPORT INFORMATION
  Report Type: Spontaneous
  Country: BR (occurrence: BR)
  Receive Date: 20230629
  Receipt Date: 20230629
  Transmission Date: 20230721
  Serious: Yes (Other)
  Sender: FDA-Public Use
  Company Number: BR-BAXTER-2023BAX024919

PATIENT
  Age: 41 Year
  Sex: Female

DRUGS (2)
  1. IRON [Suspect]
     Active Substance: IRON
     Indication: Mineral supplementation
     Dosage: 100 MG DILUTED IN 100 ML OF SALINE SOLUTION IN 60 MINUTES, SINGLE DOSE
     Route: 042
     Dates: start: 20230614, end: 20230614
  2. SODIUM CHLORIDE [Suspect]
     Active Substance: SODIUM CHLORIDE
     Indication: Medication dilution
     Dosage: 100 ML OF SALINE SOLUTION IN 60 MINUTES, SINGLE DOSE
     Route: 042
     Dates: start: 20230614, end: 20230614

REACTIONS (4)
  - Face oedema [Recovered/Resolved]
  - Abdominal distension [Recovered/Resolved]
  - Urticaria [Recovered/Resolved]
  - Product administration error [Unknown]

NARRATIVE: CASE EVENT DATE: 20230614
